FAERS Safety Report 4489985-5 (Version None)
Quarter: 2004Q4

REPORT INFORMATION
  Report Type: 
  Country: None (occurrence: None)
  Receive Date: 20041027
  Receipt Date: 20040712
  Transmission Date: 20050328
  Serious: Yes (Hospitalization)
  Sender: FDA-Public Use
  Company Number: CIO04016521

PATIENT
  Age: 83 Year
  Sex: Female
  Weight: 59.4 kg

DRUGS (3)
  1. METAMUCIL-2 [Suspect]
     Dosage: 2 CAPSUL. 1/DAY FOR 21 DAYS, ORAL
     Route: 048
  2. SYNTHROID [Concomitant]
  3. ANTIHYPETENSIVES [Concomitant]

REACTIONS (1)
  - INTESTINAL OBSTRUCTION [None]
